FAERS Safety Report 20199809 (Version 1)
Quarter: 2021Q4

REPORT INFORMATION
  Report Type: Spontaneous
  Country: US (occurrence: US)
  Receive Date: 20211217
  Receipt Date: 20211217
  Transmission Date: 20220303
  Serious: No
  Sender: FDA-Public Use
  Company Number: US-PFIZER INC-2021499789

PATIENT
  Age: 49 Year
  Sex: Male
  Weight: 84.82 kg

DRUGS (2)
  1. GABAPENTIN [Suspect]
     Active Substance: GABAPENTIN
     Indication: Neuropathy peripheral
     Dosage: UP TO 4 TIMES A DAY
  2. GABAPENTIN [Suspect]
     Active Substance: GABAPENTIN
     Dosage: BACKED IT DOWN TO 2 TIMES A DAY IF HE CAN

REACTIONS (2)
  - Feeling abnormal [Unknown]
  - Off label use [Unknown]
